FAERS Safety Report 6628626-5 (Version None)
Quarter: 2010Q1

REPORT INFORMATION
  Report Type: 
  Country: None (occurrence: None)
  Receive Date: 20100310
  Receipt Date: 20100310
  Transmission Date: 20100710
  Serious: No
  Sender: FDA-Public Use
  Company Number: None

PATIENT
  Sex: Male
  Weight: 119.7496 kg

DRUGS (1)
  1. LEVOTHYROXINE SODIUM [Suspect]
     Indication: HYPOTHYROIDISM
     Dosage: 1 PO QD PO
     Route: 048
     Dates: start: 20090805, end: 20091010

REACTIONS (2)
  - BLOOD THYROID STIMULATING HORMONE DECREASED [None]
  - PRODUCT MEASURED POTENCY ISSUE [None]
